FAERS Safety Report 9559154 (Version 2)
Quarter: 2013Q3

REPORT INFORMATION
  Report Type: Report from Study
  Country: US (occurrence: US)
  Receive Date: 20130927
  Receipt Date: 20130927
  Transmission Date: 20140515
  Serious: Yes (Other)
  Sender: FDA-Public Use
  Company Number: US-ROCHE-1263226

PATIENT
  Age: 59 Year
  Sex: Male

DRUGS (2)
  1. AVASTIN [Suspect]
     Indication: GLIOBLASTOMA MULTIFORME
     Dosage: FIRST LINE DOSE
     Route: 065
  2. BICNU [Concomitant]

REACTIONS (3)
  - Surgery [Unknown]
  - Disease progression [Unknown]
  - Drug dose omission [Unknown]
